FAERS Safety Report 7584111-8 (Version None)
Quarter: 2011Q2

REPORT INFORMATION
  Report Type: 
  Country: None (occurrence: None)
  Receive Date: 20110630
  Receipt Date: 20110628
  Transmission Date: 20111010
  Serious: Yes (Other)
  Sender: FDA-Public Use
  Company Number: JP-BRACCO-004892

PATIENT
  Sex: Female
  Weight: 52 kg

DRUGS (2)
  1. IOPAMIDOL [Suspect]
     Indication: INTRACRANIAL ANEURYSM
     Dosage: 9 ML/S
     Route: 042
     Dates: start: 20110601, end: 20110601
  2. IOPAMIDOL [Suspect]
     Indication: COMPUTERISED TOMOGRAM HEAD
     Dosage: 9 ML/S
     Route: 042
     Dates: start: 20110601, end: 20110601

REACTIONS (7)
  - ASTHENIA [None]
  - UNRESPONSIVE TO STIMULI [None]
  - SPEECH DISORDER [None]
  - EYE DISORDER [None]
  - MOBILITY DECREASED [None]
  - APHONIA [None]
  - EYE MOVEMENT DISORDER [None]
